FAERS Safety Report 15424979 (Version 1)
Quarter: 2018Q3

REPORT INFORMATION
  Report Type: Report from Study
  Country: US (occurrence: US)
  Receive Date: 20180925
  Receipt Date: 20180925
  Transmission Date: 20181010
  Serious: Yes (Other)
  Sender: FDA-Public Use
  Company Number: PHEH2014US007799

PATIENT
  Sex: Female

DRUGS (2)
  1. GILENYA [Suspect]
     Active Substance: FINGOLIMOD HYDROCHLORIDE
     Indication: MULTIPLE SCLEROSIS
     Dosage: 0.5 MG, QD
     Route: 048
     Dates: start: 201202, end: 201302
  2. SOLU?MEDROL [Concomitant]
     Active Substance: METHYLPREDNISOLONE SODIUM SUCCINATE
     Route: 042

REACTIONS (9)
  - Vision blurred [Not Recovered/Not Resolved]
  - Multiple sclerosis relapse [Unknown]
  - Fatigue [Unknown]
  - Balance disorder [Unknown]
  - Hypoaesthesia [Unknown]
  - Feeling cold [Unknown]
  - Maternal exposure during pregnancy [Unknown]
  - Diplopia [Not Recovered/Not Resolved]
  - Headache [Unknown]

NARRATIVE: CASE EVENT DATE: 2012
